FAERS Safety Report 24425139 (Version 2)
Quarter: 2025Q1

REPORT INFORMATION
  Report Type: Report from Study
  Country: US (occurrence: US)
  Receive Date: 20241010
  Receipt Date: 20250113
  Transmission Date: 20250409
  Serious: Yes (Other)
  Sender: TAKEDA
  Company Number: US-TAKEDA-2024TUS055940

PATIENT
  Age: 57 Year
  Sex: Male

DRUGS (5)
  1. MARIBAVIR [Suspect]
     Active Substance: MARIBAVIR
     Indication: Cytomegalovirus infection
     Dosage: 400 MILLIGRAM, BID
     Dates: start: 20240531
  2. MARIBAVIR [Suspect]
     Active Substance: MARIBAVIR
     Indication: Renal transplant
     Dosage: 200 MILLIGRAM, BID
  3. MARIBAVIR [Suspect]
     Active Substance: MARIBAVIR
     Dosage: 400 MILLIGRAM, BID
     Dates: start: 20240608
  4. MARIBAVIR [Suspect]
     Active Substance: MARIBAVIR
     Dosage: 400 MILLIGRAM, BID
  5. MARIBAVIR [Suspect]
     Active Substance: MARIBAVIR
     Dosage: 400 MILLIGRAM, BID

REACTIONS (25)
  - Multiple fractures [Unknown]
  - Thrombosis [Unknown]
  - Back pain [Recovered/Resolved]
  - Swelling face [Recovered/Resolved]
  - Eye swelling [Recovered/Resolved]
  - Product prescribing issue [Unknown]
  - Product use issue [Unknown]
  - Product dose omission issue [Unknown]
  - Mobility decreased [Unknown]
  - Back disorder [Unknown]
  - Somnolence [Unknown]
  - Gait inability [Unknown]
  - Walking aid user [Unknown]
  - Asthenia [Unknown]
  - Eye pruritus [Unknown]
  - Red blood cell count abnormal [Unknown]
  - Dry eye [Unknown]
  - Lacrimation increased [Unknown]
  - Generalised oedema [Unknown]
  - Weight increased [Unknown]
  - Pain [Unknown]
  - Peripheral swelling [Unknown]
  - Fatigue [Unknown]
  - Taste disorder [Unknown]
  - Dysgeusia [Recovered/Resolved]

NARRATIVE: CASE EVENT DATE: 20240802
